FAERS Safety Report 12409519 (Version 1)
Quarter: 2016Q2

REPORT INFORMATION
  Report Type: Report from Study
  Country: US (occurrence: US)
  Receive Date: 20160526
  Receipt Date: 20160526
  Transmission Date: 20160815
  Serious: Yes (Hospitalization)
  Sender: FDA-Public Use
  Company Number: US-TEVA-663033USA

PATIENT
  Age: 67 Year
  Sex: Male
  Weight: 112 kg

DRUGS (30)
  1. TOPROL XL [Concomitant]
     Active Substance: METOPROLOL SUCCINATE
     Dosage: 50 MILLIGRAM DAILY;
     Route: 048
  2. RISPERDAL [Concomitant]
     Active Substance: RISPERIDONE
     Indication: ANXIETY
     Dosage: 2 MILLIGRAM DAILY;
     Route: 048
     Dates: start: 2009
  3. ALDACTONE [Concomitant]
     Active Substance: SPIRONOLACTONE
     Dosage: 2 MILLIGRAM DAILY;
     Route: 048
  4. VICTOZA? (LIRAGLUTIDE [RDNA ORIGIN] INJECTION) [Concomitant]
     Indication: DIABETES MELLITUS
     Dosage: 1.8 MILLIGRAM DAILY;
     Route: 058
  5. ALDACTONE [Concomitant]
     Active Substance: SPIRONOLACTONE
     Dosage: 2 MILLIGRAM DAILY;
     Route: 048
  6. COMBIVENT [Concomitant]
     Active Substance: ALBUTEROL SULFATE\IPRATROPIUM BROMIDE
     Indication: WHEEZING
     Dosage: 2 PUFFS Q6H
     Route: 055
     Dates: start: 2013
  7. FENOFIBRATE. [Concomitant]
     Active Substance: FENOFIBRATE
     Indication: HYPERLIPIDAEMIA
     Dosage: 160 MILLIGRAM DAILY;
     Route: 048
     Dates: start: 2013
  8. ULTRAM [Concomitant]
     Active Substance: TRAMADOL HYDROCHLORIDE
     Indication: ARTHRITIS
     Dosage: 2 MILLIGRAM DAILY;
     Route: 048
  9. EFFIENT (PRASUGREL) [Concomitant]
     Indication: ISCHAEMIC CARDIOMYOPATHY
     Dosage: 10 MILLIGRAM DAILY;
     Route: 048
     Dates: start: 2013
  10. ALDACTONE [Concomitant]
     Active Substance: SPIRONOLACTONE
     Indication: ANGINA PECTORIS
     Dosage: 1000 MILLIGRAM DAILY;
     Route: 048
     Dates: start: 20101206
  11. INSULIN GLARGINE [Concomitant]
     Active Substance: INSULIN GLARGINE
     Indication: DIABETES MELLITUS
     Dosage: 70 IU (INTERNATIONAL UNIT) DAILY;
     Route: 058
     Dates: start: 2013
  12. ASPIRIN. [Concomitant]
     Active Substance: ASPIRIN
     Indication: ISCHAEMIC CARDIOMYOPATHY
     Dosage: 81 MILLIGRAM DAILY;
     Route: 048
     Dates: start: 1987
  13. RISPERDAL [Concomitant]
     Active Substance: RISPERIDONE
     Dosage: 2 MILLIGRAM DAILY;
     Route: 048
  14. COMBIVENT [Concomitant]
     Active Substance: ALBUTEROL SULFATE\IPRATROPIUM BROMIDE
     Indication: CHRONIC OBSTRUCTIVE PULMONARY DISEASE
  15. PRINIVIL [Concomitant]
     Active Substance: LISINOPRIL
     Dosage: 2.5 MILLIGRAM DAILY;
     Route: 048
  16. ALDACTONE [Concomitant]
     Active Substance: SPIRONOLACTONE
     Indication: ISCHAEMIC CARDIOMYOPATHY
     Dosage: 25 MILLIGRAM DAILY;
     Route: 048
     Dates: start: 2006
  17. METOPROLOL. [Suspect]
     Active Substance: METOPROLOL
     Indication: HYPERTENSION
     Dosage: 25 MILLIGRAM DAILY;
     Route: 048
     Dates: start: 2005
  18. LANOXIN [Concomitant]
     Active Substance: DIGOXIN
     Indication: ISCHAEMIC CARDIOMYOPATHY
     Dosage: 125 MICROGRAM DAILY; MONDAY THROUGH FRIDAY
     Route: 048
     Dates: start: 2008
  19. ULTRAM [Concomitant]
     Active Substance: TRAMADOL HYDROCHLORIDE
     Indication: PAIN
     Dosage: Q8H
     Route: 048
     Dates: start: 2013
  20. NOVOLOG [Concomitant]
     Active Substance: INSULIN ASPART
     Indication: DIABETES MELLITUS
     Route: 058
     Dates: start: 2011
  21. CEP-41750 [Suspect]
     Active Substance: INVESTIGATIONAL PRODUCT
     Indication: CARDIAC FAILURE CHRONIC
     Dosage: CEP-41750 VS PLACEBO
     Route: 016
     Dates: start: 20160426, end: 20160426
  22. IMDUR [Concomitant]
     Active Substance: ISOSORBIDE MONONITRATE
     Indication: ANGINA PECTORIS
     Dosage: 120 MILLIGRAM DAILY;
     Route: 048
  23. NITRO-DUR [Concomitant]
     Active Substance: NITROGLYCERIN
     Dosage: 1 INCH
     Route: 061
  24. ADVAIR HFA [Concomitant]
     Active Substance: FLUTICASONE PROPIONATE\SALMETEROL XINAFOATE
     Indication: CHRONIC OBSTRUCTIVE PULMONARY DISEASE
     Dosage: 1 PUFF 250/50
     Route: 055
     Dates: start: 2011
  25. CITALOPRAM [Concomitant]
     Active Substance: CITALOPRAM HYDROBROMIDE
     Indication: DEPRESSION
     Dosage: 40 MILLIGRAM DAILY;
     Route: 048
     Dates: start: 2008
  26. LIPITOR [Concomitant]
     Active Substance: ATORVASTATIN CALCIUM
     Indication: HYPERLIPIDAEMIA
     Dosage: 40 MILLIGRAM DAILY;
     Route: 048
     Dates: start: 2005
  27. SYNTHROID [Concomitant]
     Active Substance: LEVOTHYROXINE SODIUM
     Indication: HYPOTHYROIDISM
     Dosage: 75 MICROGRAM DAILY;
     Route: 048
     Dates: start: 2013
  28. NITROLINGUAL [Concomitant]
     Active Substance: NITROGLYCERIN
     Indication: CHEST PAIN
     Dosage: EVERY 5 MINS
     Route: 060
  29. PROTONIX [Concomitant]
     Active Substance: PANTOPRAZOLE SODIUM
     Indication: GASTROOESOPHAGEAL REFLUX DISEASE
     Dosage: 80 MILLIGRAM DAILY;
     Route: 048
     Dates: start: 2011
  30. SPIRIVA [Concomitant]
     Active Substance: TIOTROPIUM BROMIDE MONOHYDRATE
     Indication: CHRONIC OBSTRUCTIVE PULMONARY DISEASE
     Dosage: 1 PUFF
     Route: 055
     Dates: start: 2013

REACTIONS (1)
  - Syncope [Recovered/Resolved]

NARRATIVE: CASE EVENT DATE: 20160519
